FAERS Safety Report 17870481 (Version 1)
Quarter: 2020Q2

REPORT INFORMATION
  Report Type: Spontaneous
  Country: US (occurrence: US)
  Receive Date: 20200606
  Receipt Date: 20200606
  Transmission Date: 20200714
  Serious: Yes (Life-Threatening, Hospitalization)
  Sender: FDA-Public Use
  Company Number: None

PATIENT
  Age: 46 Year
  Sex: Male
  Weight: 164.25 kg

DRUGS (7)
  1. TESTOSTSERONE PELLETS [Concomitant]
  2. CPAP MACHINE [Concomitant]
  3. ADK [Concomitant]
  4. NP THYROID [Suspect]
     Active Substance: LEVOTHYROXINE\LIOTHYRONINE
     Indication: THYROID HORMONES INCREASED
     Dosage: ?          QUANTITY:1 TABLET(S);?
     Route: 048
  5. BLOOD PRESSURE MEDICINE [Concomitant]
     Active Substance: UNSPECIFIED INGREDIENT
  6. VITAMIN C [Concomitant]
     Active Substance: ASCORBIC ACID
  7. DIM [Concomitant]

REACTIONS (6)
  - Dyspnoea [None]
  - Heart rate irregular [None]
  - Heart rate increased [None]
  - Recalled product administered [None]
  - Hyperhidrosis [None]
  - Atrial fibrillation [None]

NARRATIVE: CASE EVENT DATE: 20200518
